FAERS Safety Report 24704430 (Version 1)
Quarter: 2024Q4

REPORT INFORMATION
  Report Type: Spontaneous
  Country: ES (occurrence: ES)
  Receive Date: 20241206
  Receipt Date: 20241206
  Transmission Date: 20250115
  Serious: Yes (Other)
  Sender: AMGEN
  Company Number: ES-AMGEN-ESPSP2024236617

PATIENT
  Age: 69 Year
  Sex: Female

DRUGS (1)
  1. PROLIA [Suspect]
     Active Substance: DENOSUMAB
     Indication: Product used for unknown indication
     Dosage: UNK
     Route: 065

REACTIONS (6)
  - Spinal fracture [Unknown]
  - Osteonecrosis [Unknown]
  - Arthrodesis [Unknown]
  - Infection [Unknown]
  - Body height decreased [Unknown]
  - Migraine [Unknown]

NARRATIVE: CASE EVENT DATE: 20240101
